FAERS Safety Report 24102923 (Version 1)
Quarter: 2024Q3

REPORT INFORMATION
  Report Type: Other
  Country: FR (occurrence: FR)
  Receive Date: 20240717
  Receipt Date: 20240717
  Transmission Date: 20241017
  Serious: Yes (Other)
  Sender: pharmaAND
  Company Number: FR-AFSSAPS-PB2024000718

PATIENT
  Age: 62 Year
  Sex: Female

DRUGS (2)
  1. PEGASYS [Suspect]
     Active Substance: PEGINTERFERON ALFA-2A
     Indication: Polycythaemia vera
     Dosage: 2 DOSAGE FORM EVERY 1 DAY(S)
     Route: 058
     Dates: start: 202304, end: 202311
  2. HYDREA [Suspect]
     Active Substance: HYDROXYUREA
     Indication: Polycythaemia vera
     Dosage: 500 MILLIGRAM EVERY 1 WEEK(S)
     Route: 048
     Dates: start: 201806, end: 202311

REACTIONS (4)
  - Rash [Recovered/Resolved]
  - Aphthous ulcer [Recovered/Resolved]
  - Off label use [Recovered/Resolved]
  - Polycythaemia vera [Recovered/Resolved]

NARRATIVE: CASE EVENT DATE: 20231001
